FAERS Safety Report 4630050-1 (Version None)
Quarter: 2005Q2

REPORT INFORMATION
  Report Type: 
  Country: None (occurrence: None)
  Receive Date: 20050408
  Receipt Date: 20050329
  Transmission Date: 20051028
  Serious: Yes (Other)
  Sender: FDA-Public Use
  Company Number: US-KINGPHARMUSA00001-K200500440

PATIENT
  Age: 50 Year
  Sex: Female
  Weight: 54 kg

DRUGS (1)
  1. APLISOL DIAGNOSTIC ANTIGEN [Suspect]
     Indication: TUBERCULIN TEST
     Dosage: UNK, SINGLE

REACTIONS (6)
  - BRACHIAL PLEXUS LESION [None]
  - HYPOAESTHESIA [None]
  - LIMB DISCOMFORT [None]
  - NEUROPATHY [None]
  - PAIN [None]
  - PARAESTHESIA [None]
